FAERS Safety Report 18607653 (Version 4)
Quarter: 2021Q2

REPORT INFORMATION
  Report Type: Spontaneous
  Country: AU (occurrence: AU)
  Receive Date: 20201211
  Receipt Date: 20210617
  Transmission Date: 20210717
  Serious: Yes (Death, Hospitalization)
  Sender: FDA-Public Use
  Company Number: AU-CELGENEUS-AUS-20201100034

PATIENT
  Age: 72 Year
  Sex: Female
  Weight: 63.5 kg

DRUGS (49)
  1. AZACITIDINE. [Suspect]
     Active Substance: AZACITIDINE
     Dosage: 50 MG/SQ.METER (DAYS 1?5 OF WEEK 1 AND DAYS 1 AND 2 OF WEEK 2, INCLUDING A 2 DAY BREAK)
     Route: 058
     Dates: start: 20200128, end: 20200205
  2. VENETOCLAX. [Concomitant]
     Active Substance: VENETOCLAX
     Dosage: 50 MILLIGRAM
     Route: 048
     Dates: start: 20200601, end: 20200614
  3. QUICK?EZE [Concomitant]
     Indication: GASTROOESOPHAGEAL REFLUX DISEASE
     Route: 048
     Dates: start: 201909, end: 20201029
  4. POTASSIUM CHLORIDE. [Concomitant]
     Active Substance: POTASSIUM CHLORIDE
     Route: 041
     Dates: start: 20200617, end: 20200709
  5. SLOW K POTASSIUM [Concomitant]
     Dosage: 3600 MILLIGRAM
     Route: 048
     Dates: start: 20200628, end: 20200924
  6. SPIRONOLACTONE. [Concomitant]
     Active Substance: SPIRONOLACTONE
     Dosage: 25 MILLIGRAM
     Route: 065
     Dates: start: 20200806, end: 202009
  7. PHOSPHORIC ACID SODIUM [Concomitant]
     Dosage: 1000 MILLIGRAM
     Route: 065
     Dates: start: 20201002, end: 20201028
  8. MOVICOL [Concomitant]
     Active Substance: POLYETHYLENE GLYCOL 3350\POTASSIUM CHLORIDE\SODIUM BICARBONATE\SODIUM CHLORIDE
     Indication: CONSTIPATION
     Route: 048
     Dates: start: 20190916, end: 20201029
  9. TRANEXAMIC ACID. [Concomitant]
     Active Substance: TRANEXAMIC ACID
     Dosage: 3000 MILLIGRAM
     Route: 065
     Dates: start: 20200923, end: 20201001
  10. ESOMEPRAZOLE. [Concomitant]
     Active Substance: ESOMEPRAZOLE MAGNESIUM
     Dosage: 20 MILLIGRAM
     Route: 065
     Dates: start: 2019, end: 20201027
  11. AZACITIDINE. [Suspect]
     Active Substance: AZACITIDINE
     Indication: MYELODYSPLASTIC SYNDROME
     Route: 058
     Dates: start: 20190911, end: 20191126
  12. VENETOCLAX. [Concomitant]
     Active Substance: VENETOCLAX
     Indication: MYELODYSPLASTIC SYNDROME
     Dosage: 400 MILLIGRAM
     Route: 048
     Dates: start: 20190911, end: 20200210
  13. SYMBICORT [Concomitant]
     Active Substance: BUDESONIDE\FORMOTEROL FUMARATE DIHYDRATE
     Indication: RESPIRATORY DISORDER
     Route: 055
     Dates: start: 20190831, end: 20201028
  14. COVERSYL PLUS [Concomitant]
     Active Substance: INDAPAMIDE\PERINDOPRIL
     Indication: HYPERTENSION
     Dosage: 1 TABLET
     Route: 048
     Dates: start: 20190831
  15. POTASSIUM CHLORIDE. [Concomitant]
     Active Substance: POTASSIUM CHLORIDE
     Indication: HYPOKALAEMIA
     Route: 048
     Dates: start: 20200719, end: 20201029
  16. VENETOCLAX. [Concomitant]
     Active Substance: VENETOCLAX
     Dosage: 50 MILLIGRAM
     Route: 048
     Dates: start: 20200928, end: 20201031
  17. PERINDOPRIL [Concomitant]
     Active Substance: PERINDOPRIL
     Indication: HYPERTENSION
     Route: 048
     Dates: start: 20200619, end: 20200629
  18. HYDROXYUREA. [Concomitant]
     Active Substance: HYDROXYUREA
     Dosage: 2 GRAM
     Route: 065
     Dates: start: 20201015, end: 20201029
  19. SPIRONOLACTONE. [Concomitant]
     Active Substance: SPIRONOLACTONE
     Indication: HYPERTENSION
     Route: 065
     Dates: start: 20200805, end: 20200805
  20. PHOSPHORIC ACID SODIUM [Concomitant]
     Dosage: 3000 MILLIGRAM
     Route: 065
     Dates: start: 20200923, end: 20201001
  21. ALLOPURINOL. [Concomitant]
     Active Substance: ALLOPURINOL
     Indication: NAUSEA
     Dosage: 300 MILLIGRAM
     Route: 048
     Dates: start: 202009, end: 20201029
  22. ENTECAVIR. [Concomitant]
     Active Substance: ENTECAVIR
     Indication: ANTIVIRAL PROPHYLAXIS
     Dosage: .5 MILLIGRAM
     Route: 048
     Dates: start: 20190904, end: 20201029
  23. SYMBICORT [Concomitant]
     Active Substance: BUDESONIDE\FORMOTEROL FUMARATE DIHYDRATE
     Indication: ASTHMA
  24. NIZATIDINE. [Concomitant]
     Active Substance: NIZATIDINE
     Indication: DYSPEPSIA
     Route: 048
     Dates: start: 20190831, end: 20201029
  25. METOCLOPRAMIDE. [Concomitant]
     Active Substance: METOCLOPRAMIDE
     Indication: PROPHYLAXIS
     Route: 048
     Dates: start: 20190912, end: 20201029
  26. HYDROXYUREA. [Concomitant]
     Active Substance: HYDROXYUREA
     Indication: DISEASE PROGRESSION
     Dosage: 2000 MILLIGRAM
     Route: 065
     Dates: start: 20200922, end: 20200927
  27. SLOW K POTASSIUM [Concomitant]
     Indication: HYPOKALAEMIA
     Dosage: 2400 MILLIGRAM
     Route: 048
     Dates: start: 20200624, end: 20200627
  28. SLOW K POTASSIUM [Concomitant]
     Dosage: 2400 MILLIGRAM
     Route: 048
     Dates: start: 20200928, end: 20201002
  29. TRANEXAMIC ACID. [Concomitant]
     Active Substance: TRANEXAMIC ACID
     Indication: HAEMORRHAGE PROPHYLAXIS
     Dosage: 2000 MILLIGRAM
     Route: 065
     Dates: start: 20200610, end: 20200902
  30. ESOMEPRAZOLE. [Concomitant]
     Active Substance: ESOMEPRAZOLE MAGNESIUM
     Indication: GASTROOESOPHAGEAL REFLUX DISEASE
     Dosage: 20 MILLIGRAM
     Route: 065
     Dates: start: 20190831, end: 20190916
  31. VALACICLOVIR [Concomitant]
     Active Substance: VALACYCLOVIR HYDROCHLORIDE
     Indication: ANTIVIRAL PROPHYLAXIS
     Dosage: 1000 MILLIGRAM
     Route: 048
     Dates: start: 20190831, end: 20201028
  32. POSACONAZOLE [Concomitant]
     Active Substance: POSACONAZOLE
     Route: 065
     Dates: start: 2020
  33. PERINDOPRIL [Concomitant]
     Active Substance: PERINDOPRIL
     Route: 048
     Dates: start: 20200630, end: 20201026
  34. LACTULOSE. [Concomitant]
     Active Substance: LACTULOSE
     Indication: CONSTIPATION
     Route: 048
     Dates: start: 20200625, end: 20201029
  35. SLOW K POTASSIUM [Concomitant]
     Dosage: 5400 MILLIGRAM
     Route: 048
     Dates: start: 20201002, end: 20201028
  36. SPIRONOLACTONE. [Concomitant]
     Active Substance: SPIRONOLACTONE
     Dosage: 24 MILLIGRAM
     Route: 065
     Dates: start: 20201001, end: 20201028
  37. PHOSPHORIC ACID SODIUM [Concomitant]
     Indication: HYPOPHOSPHATAEMIA
     Dosage: 1000 MILLIGRAM
     Route: 065
     Dates: start: 20200702, end: 20201028
  38. COLECALCIFEROL [Concomitant]
     Active Substance: CHOLECALCIFEROL
     Indication: NUTRITIONAL SUPPLEMENTATION
     Dosage: 25 MICROGRAM
     Route: 048
     Dates: start: 20190831, end: 20201028
  39. PANTOPRAZOLE [Concomitant]
     Active Substance: PANTOPRAZOLE
     Indication: GASTROOESOPHAGEAL REFLUX DISEASE
     Dosage: 80 MILLIGRAM
     Route: 048
     Dates: start: 20190916
  40. POSACONAZOLE [Concomitant]
     Active Substance: POSACONAZOLE
     Indication: FEBRILE NEUTROPENIA
     Dosage: 200 MILLIGRAM
     Route: 048
     Dates: start: 2020, end: 20201028
  41. MAGNESIUM ASPARTAT [Concomitant]
     Indication: HYPOMAGNESAEMIA
     Route: 048
     Dates: start: 20200720, end: 20201026
  42. POTASSIUM CHLORIDE. [Concomitant]
     Active Substance: POTASSIUM CHLORIDE
     Route: 048
     Dates: start: 20200720, end: 20201029
  43. AZACITIDINE. [Suspect]
     Active Substance: AZACITIDINE
     Dosage: 36 MG/SQ.METER (DAYS 1?5 OF WEEK 1 AND DAYS 1 AND 2 OF WEEK 2, INCLUDING A 2 DAY BREAK)
     Route: 058
     Dates: start: 20200601, end: 20201031
  44. ALLOPURINOL. [Concomitant]
     Active Substance: ALLOPURINOL
     Indication: TUMOUR LYSIS SYNDROME
     Route: 048
     Dates: start: 20190831, end: 20190905
  45. PARACETAMOL [Concomitant]
     Active Substance: ACETAMINOPHEN
     Indication: PAIN
     Route: 048
     Dates: start: 20190831, end: 20201029
  46. ONDANSETRON [Concomitant]
     Active Substance: ONDANSETRON
     Indication: PROPHYLAXIS OF NAUSEA AND VOMITING
     Route: 048
     Dates: start: 20190911, end: 20201029
  47. COLOXYL WITH SENNA [Concomitant]
     Active Substance: DOCUSATE SODIUM\SENNOSIDES A AND B
     Indication: CONSTIPATION
     Route: 048
     Dates: start: 20190916, end: 20201028
  48. POSACONAZOLE [Concomitant]
     Active Substance: POSACONAZOLE
     Indication: FUNGAL INFECTION
     Dosage: 300 MILLIGRAM
     Route: 048
     Dates: start: 20200428, end: 20200807
  49. TRANEXAMIC ACID. [Concomitant]
     Active Substance: TRANEXAMIC ACID
     Dosage: 1000 MILLIGRAM
     Route: 065
     Dates: start: 20201002, end: 20201028

REACTIONS (1)
  - Febrile neutropenia [Fatal]

NARRATIVE: CASE EVENT DATE: 20201026
